FAERS Safety Report 24682324 (Version 2)
Quarter: 2024Q4

REPORT INFORMATION
  Report Type: Report from Study
  Country: DE (occurrence: DE)
  Receive Date: 20241130
  Receipt Date: 20241206
  Transmission Date: 20250115
  Serious: No
  Sender: ROCHE
  Company Number: DE-ROCHE-10000144729

PATIENT
  Sex: Male

DRUGS (8)
  1. FARICIMAB [Suspect]
     Active Substance: FARICIMAB
     Indication: Neovascular age-related macular degeneration
     Dosage: DOSE CONCENTRATION: 120 MG/ML
     Route: 050
     Dates: start: 20240227
  2. METFORMIN 500G [Concomitant]
     Indication: Diabetes mellitus
     Dates: start: 2001
  3. TORASEMID 5MG [Concomitant]
     Indication: Arrhythmia
     Dates: start: 2001
  4. BISOLICH 5MG [Concomitant]
     Indication: Arrhythmia
     Dates: start: 2001
  5. ATORVASTATIN [Concomitant]
     Active Substance: ATORVASTATIN
     Indication: Lipids increased
     Dates: start: 2001
  6. MARCUMAR 3MG [Concomitant]
     Dates: start: 2001
  7. RAMILICH 5MG [Concomitant]
     Indication: Hypertension
     Dates: start: 2001
  8. VABYSMO LEFT [Concomitant]
     Indication: Neovascular age-related macular degeneration
     Dates: start: 20240227

REACTIONS (1)
  - Otitis media [Recovered/Resolved]
